FAERS Safety Report 4419892-5 (Version None)
Quarter: 2004Q3

REPORT INFORMATION
  Report Type: 
  Country: None (occurrence: None)
  Receive Date: 20040804
  Receipt Date: 20040716
  Transmission Date: 20050211
  Serious: Yes (Hospitalization)
  Sender: FDA-Public Use
  Company Number: MEDI-0002132

PATIENT
  Age: 4 Month
  Sex: Female

DRUGS (9)
  1. SYNAGIS [Suspect]
     Indication: ANTIVIRAL PROPHYLAXIS
     Dosage: SEE IMAGE
     Route: 030
     Dates: start: 20031118, end: 20040220
  2. SYNAGIS [Suspect]
     Indication: ANTIVIRAL PROPHYLAXIS
     Dosage: SEE IMAGE
     Route: 030
     Dates: start: 20031118
  3. SYNAGIS [Suspect]
     Indication: ANTIVIRAL PROPHYLAXIS
     Dosage: SEE IMAGE
     Route: 030
     Dates: start: 20031219
  4. SYNAGIS [Suspect]
     Indication: ANTIVIRAL PROPHYLAXIS
     Dosage: SEE IMAGE
     Route: 030
     Dates: start: 20040119
  5. SYNAGIS [Suspect]
     Indication: ANTIVIRAL PROPHYLAXIS
     Dosage: SEE IMAGE
     Route: 030
     Dates: start: 20040319
  6. SYNAGIS [Suspect]
     Indication: ANTIVIRAL PROPHYLAXIS
     Dosage: SEE IMAGE
     Route: 030
     Dates: start: 20040421
  7. FERRIC PYROPHOSPATE (FERRIC PYROPHOSPHATE) [Concomitant]
  8. TOCOPHEROL ACETATE (TOCOPHEROL) [Concomitant]
  9. FOLIC ACID [Concomitant]

REACTIONS (5)
  - BACTERIAL INFECTION [None]
  - BRONCHIOLITIS [None]
  - BRONCHITIS [None]
  - DIARRHOEA [None]
  - VIRAL INFECTION [None]
